FAERS Safety Report 13478965 (Version 2)
Quarter: 2017Q3

REPORT INFORMATION
  Report Type: Spontaneous
  Country: SK (occurrence: SK)
  Receive Date: 20170425
  Receipt Date: 20170829
  Transmission Date: 20171127
  Serious: Yes (Death)
  Sender: FDA-Public Use
  Company Number: SK-CELGENEUS-SVK-20170403906

PATIENT
  Age: 72 Year
  Sex: Male

DRUGS (1)
  1. AZACITIDINE. [Suspect]
     Active Substance: AZACITIDINE
     Indication: MYELODYSPLASTIC SYNDROME
     Dosage: 75 MILLIGRAM/SQ. METER
     Route: 065
     Dates: start: 20170405, end: 20170406

REACTIONS (1)
  - Oesophageal haemorrhage [Fatal]

NARRATIVE: CASE EVENT DATE: 201704
